FAERS Safety Report 4486379-3 (Version None)
Quarter: 2004Q4

REPORT INFORMATION
  Report Type: 
  Country: None (occurrence: None)
  Receive Date: 20041022
  Receipt Date: 20041011
  Transmission Date: 20050328
  Serious: Yes (Other)
  Sender: FDA-Public Use
  Company Number: 2004237892US

PATIENT
  Age: 5 Year
  Sex: Male
  Weight: 25.4 kg

DRUGS (1)
  1. DEPO-TESTOSTERONE [Suspect]
     Dosage: TOPICAL
     Route: 061

REACTIONS (2)
  - ACCIDENTAL EXPOSURE [None]
  - PRECOCIOUS PUBERTY [None]
